FAERS Safety Report 8252450-3 (Version None)
Quarter: 2012Q2

REPORT INFORMATION
  Report Type: 
  Country: None (occurrence: None)
  Receive Date: 20120402
  Receipt Date: 20110712
  Transmission Date: 20120825
  Serious: No
  Sender: FDA-Public Use
  Company Number: US-ABBOTT-11P-163-0838495-00

PATIENT
  Sex: Male
  Weight: 78.088 kg

DRUGS (3)
  1. ANDROGEL [Suspect]
     Indication: BLOOD TESTOSTERONE DECREASED
     Dates: start: 20110201
  2. CALCIUM CARBONATE [Concomitant]
     Indication: MINERAL SUPPLEMENTATION
  3. VITAMIN TAB [Concomitant]
     Indication: VITAMIN SUPPLEMENTATION

REACTIONS (5)
  - COUGH [None]
  - NAIL DISORDER [None]
  - ALOPECIA [None]
  - HAIR TEXTURE ABNORMAL [None]
  - INCREASED UPPER AIRWAY SECRETION [None]
